FAERS Safety Report 13193074 (Version 3)
Quarter: 2017Q2

REPORT INFORMATION
  Report Type: Report from Study
  Country: None (occurrence: US)
  Receive Date: 20170207
  Receipt Date: 20170505
  Transmission Date: 20170830
  Serious: Yes (Other)
  Sender: FDA-Public Use
  Company Number: US-ABBVIE-17K-163-1856984-00

PATIENT
  Age: 65 Year
  Sex: Female

DRUGS (4)
  1. HUMIRA [Suspect]
     Active Substance: ADALIMUMAB
     Indication: RHEUMATOID ARTHRITIS
     Route: 058
     Dates: end: 200601
  2. HUMIRA [Suspect]
     Active Substance: ADALIMUMAB
     Indication: PSORIASIS
  3. TOPAMAX [Suspect]
     Active Substance: TOPIRAMATE
     Indication: MIGRAINE
     Route: 065
  4. HUMIRA [Suspect]
     Active Substance: ADALIMUMAB
     Indication: PSORIATIC ARTHROPATHY
     Dosage: EVERY OTHER WEEK INJECTIONS TO WEEKLY, AND BACK AND FORTH A FEW TIMES
     Route: 058
     Dates: end: 20170412

REACTIONS (11)
  - Nerve compression [Unknown]
  - Brain neoplasm [Unknown]
  - Asthma [Unknown]
  - Pain [Unknown]
  - Fall [Unknown]
  - Inappropriate schedule of drug administration [Unknown]
  - Malaise [Unknown]
  - Optic nerve neoplasm [Unknown]
  - Stress [Unknown]
  - Systemic lupus erythematosus [Unknown]
  - Migraine [Unknown]

NARRATIVE: CASE EVENT DATE: 201506
